FAERS Safety Report 12696236 (Version 2)
Quarter: 2016Q3

REPORT INFORMATION
  Report Type: Spontaneous
  Country: DE (occurrence: DE)
  Receive Date: 20160829
  Receipt Date: 20160915
  Transmission Date: 20161109
  Serious: Yes (Life-Threatening, Hospitalization, Disabling, Other)
  Sender: FDA-Public Use
  Company Number: DE-ASTRAZENECA-2016SE91804

PATIENT
  Age: 17932 Day
  Sex: Female
  Weight: 72 kg

DRUGS (6)
  1. RAMIPRIL. [Concomitant]
     Active Substance: RAMIPRIL
  2. TALVOSILEN [Concomitant]
     Active Substance: ACETAMINOPHEN\CODEINE PHOSPHATE
  3. ASCO TOP NASAL [Suspect]
     Active Substance: ZOLMITRIPTAN
     Dosage: PATIENT TOOK THE DRUG WHENEVER THERE WAS A NEED, SOMETIMES FOR 3-4 DAYS IN A ROW
     Route: 045
     Dates: end: 201302
  4. SULTANE [Concomitant]
     Dosage: THREE TIMES A DAY
  5. ESTREVA [Concomitant]
     Active Substance: ESTRADIOL
     Dosage: 0.1% ONCE PER DAY, LOCAL
     Route: 061
  6. METOHEXAL [Concomitant]
     Active Substance: METOPROLOL SUCCINATE

REACTIONS (15)
  - Cognitive disorder [Unknown]
  - Urinary tract infection [Recovered/Resolved]
  - Fatigue [Unknown]
  - Personality change due to a general medical condition [Unknown]
  - Mood disorder due to a general medical condition [Unknown]
  - Gait disturbance [Unknown]
  - Multiple allergies [Unknown]
  - Gastritis [Recovered/Resolved]
  - Basal ganglia haemorrhage [Unknown]
  - Intraventricular haemorrhage [Unknown]
  - Hydrocephalus [Unknown]
  - Depression [Not Recovered/Not Resolved]
  - Coma [Unknown]
  - Upper limb fracture [Unknown]
  - Hypertension [Unknown]

NARRATIVE: CASE EVENT DATE: 20130228
